FAERS Safety Report 23307485 (Version 1)
Quarter: 2023Q4

REPORT INFORMATION
  Report Type: Spontaneous
  Country: GB (occurrence: GB)
  Receive Date: 20231218
  Receipt Date: 20231218
  Transmission Date: 20240110
  Serious: Yes (Other)
  Sender: FDA-Public Use
  Company Number: None

PATIENT
  Age: 44 Year
  Sex: Male
  Weight: 91 kg

DRUGS (1)
  1. LIPITOR [Suspect]
     Active Substance: ATORVASTATIN CALCIUM
     Indication: Product used for unknown indication
     Dosage: 25 MG ONCE A DAY AT NIGHT
     Route: 065

REACTIONS (1)
  - Chest discomfort [Recovered/Resolved with Sequelae]

NARRATIVE: CASE EVENT DATE: 20231205
